FAERS Safety Report 8294499-0 (Version None)
Quarter: 2012Q2

REPORT INFORMATION
  Report Type: 
  Country: None (occurrence: None)
  Receive Date: 20120418
  Receipt Date: 20120409
  Transmission Date: 20120825
  Serious: Yes (Hospitalization)
  Sender: FDA-Public Use
  Company Number: BR-ASTRAZENECA-2012SE23482

PATIENT
  Age: 77 Year
  Sex: Male
  Weight: 74 kg

DRUGS (7)
  1. CRESTOR [Suspect]
     Route: 048
  2. PRESSAT [Concomitant]
     Route: 048
  3. MICARDIS [Concomitant]
     Route: 048
  4. CRESTOR [Suspect]
     Route: 048
     Dates: end: 20120401
  5. LABIRIN [Concomitant]
     Route: 048
  6. GALVUS MET [Concomitant]
     Indication: DIABETES MELLITUS
     Route: 048
  7. SOMALGIN CARDIO [Concomitant]
     Route: 048

REACTIONS (2)
  - CAROTID ARTERY OCCLUSION [None]
  - VENOUS OCCLUSION [None]
